FAERS Safety Report 9406226 (Version 1)
Quarter: 2013Q3

REPORT INFORMATION
  Report Type: Spontaneous
  Country: US (occurrence: US)
  Receive Date: 20130717
  Receipt Date: 20130717
  Transmission Date: 20140515
  Serious: No
  Sender: FDA-Public Use
  Company Number: US-BAUSCH-BL-2012-001076

PATIENT
  Age: 76 Year
  Sex: Female

DRUGS (3)
  1. BESIVANCE (BESIFLOXACIN OPHTHALMIC SUSPENSION) 0.6% [Suspect]
     Indication: PREOPERATIVE CARE
     Dosage: 1 DROP; 3 TIMES A DAY; RIGHT EYE
     Route: 047
     Dates: start: 20120924
  2. BESIVANCE (BESIFLOXACIN OPHTHALMIC SUSPENSION) 0.6% [Suspect]
     Indication: OFF LABEL USE
  3. NEPAFENAC [Concomitant]
     Indication: PREOPERATIVE CARE
     Dosage: 1 DROP; 3 TIMES A DAY; RIGHT EYE
     Route: 047
     Dates: start: 20120924

REACTIONS (1)
  - Dysgeusia [Not Recovered/Not Resolved]
